FAERS Safety Report 6107527-5 (Version None)
Quarter: 2009Q1

REPORT INFORMATION
  Report Type: 
  Country: None (occurrence: None)
  Receive Date: 20090309
  Receipt Date: 20090224
  Transmission Date: 20090719
  Serious: Yes (Other)
  Sender: FDA-Public Use
  Company Number: PHHY2009DE07229

PATIENT
  Sex: Female

DRUGS (1)
  1. LEPONEX [Suspect]
     Indication: SCHIZOPHRENIA
     Dosage: UNK
     Route: 048
     Dates: start: 20090101

REACTIONS (1)
  - LYMPHADENOPATHY [None]
